FAERS Safety Report 8498834-X (Version None)
Quarter: 2012Q3

REPORT INFORMATION
  Report Type: 
  Country: None (occurrence: None)
  Receive Date: 20120710
  Receipt Date: 20120629
  Transmission Date: 20120928
  Serious: Yes (Hospitalization, Other)
  Sender: FDA-Public Use
  Company Number: PT-PAR PHARMACEUTICAL, INC-2012SCPR004491

PATIENT

DRUGS (12)
  1. RISPERIDONE [Suspect]
     Indication: BIPOLAR I DISORDER
     Dosage: 3 MG, OD
     Route: 065
  2. VALPROATE SODIUM [Suspect]
     Indication: BIPOLAR I DISORDER
     Dosage: 1000 MG, / DAY
     Route: 065
  3. VALPROATE SODIUM [Suspect]
     Dosage: 250 MG, BID
     Route: 065
  4. TRAZODONE HCL [Concomitant]
     Indication: INSOMNIA
  5. VALPROATE SODIUM [Suspect]
     Dosage: 500 MG, BID
     Route: 065
  6. IBUPROFEN [Concomitant]
     Indication: INSOMNIA
  7. TRAZODONE HCL [Concomitant]
     Indication: AKATHISIA
     Dosage: 100 MG, OD
     Route: 065
  8. VALPROATE SODIUM [Suspect]
     Dosage: 250 MG, BID
     Route: 065
  9. LORAZEPAM [Suspect]
     Indication: BIPOLAR I DISORDER
     Dosage: 1 MG ONCE DAILY PLUS 2.5 MG BEFORE BEDTIME
     Route: 065
  10. HOMEOPATHIC PREPARATION [Concomitant]
     Indication: PRODUCT USED FOR UNKNOWN INDICATION
     Dosage: UNK, UNKNOWN
     Route: 065
  11. IBUPROFEN [Concomitant]
     Indication: AKATHISIA
     Dosage: 4 MG, BID
     Route: 065
  12. VALPROATE SODIUM [Suspect]
     Dosage: 750 MG, / DAY (250 MG IN THE MORNING + 500 MG AT NIGHT)

REACTIONS (2)
  - DRUG INTERACTION [None]
  - HYPERAMMONAEMIC ENCEPHALOPATHY [None]
